FAERS Safety Report 14751976 (Version 3)
Quarter: 2018Q3

REPORT INFORMATION
  Report Type: Report from Study
  Country: NL (occurrence: NL)
  Receive Date: 20180412
  Receipt Date: 20180917
  Transmission Date: 20181010
  Serious: Yes (Other)
  Sender: FDA-Public Use
  Company Number: NL-AUROBINDO-AUR-APL-2018-019700

PATIENT
  Age: 42 Year
  Sex: Male

DRUGS (1)
  1. NAPROXEN FILM?COATED TABLET [Suspect]
     Active Substance: NAPROXEN
     Indication: PRODUCT USED FOR UNKNOWN INDICATION
     Dosage: UNK
     Route: 065

REACTIONS (4)
  - Erythema [Unknown]
  - Hypotension [Unknown]
  - Hypersensitivity [Unknown]
  - Stridor [Unknown]
